FAERS Safety Report 19452103 (Version 1)
Quarter: 2021Q2

REPORT INFORMATION
  Report Type: Spontaneous
  Country: US (occurrence: US)
  Receive Date: 20210623
  Receipt Date: 20210623
  Transmission Date: 20210717
  Serious: Yes (Death)
  Sender: FDA-Public Use
  Company Number: None

PATIENT
  Age: 74 Year
  Sex: Female

DRUGS (12)
  1. BUPROPION. [Concomitant]
     Active Substance: BUPROPION
  2. OMEPRAZOLE. [Concomitant]
     Active Substance: OMEPRAZOLE
  3. METFORMIN [Concomitant]
     Active Substance: METFORMIN HYDROCHLORIDE
  4. FUROSEMIDE. [Concomitant]
     Active Substance: FUROSEMIDE
  5. MUPIROCIN OIN [Concomitant]
  6. QUETIAPINE. [Concomitant]
     Active Substance: QUETIAPINE
  7. TRAMADOL HCL [Concomitant]
     Active Substance: TRAMADOL HYDROCHLORIDE
  8. COLLAGENASE SANTYL [Suspect]
     Active Substance: COLLAGENASE CLOSTRIDIUM HISTOLYTICUM
     Indication: DECUBITUS ULCER
     Dosage: ?          OTHER STRENGTH:250U/GM;?
     Route: 061
     Dates: start: 20210505, end: 20210621
  9. ATORVASTATIN [Concomitant]
     Active Substance: ATORVASTATIN
  10. CLOPIDOGREL [Concomitant]
     Active Substance: CLOPIDOGREL BISULFATE
  11. RANOLAZINE. [Concomitant]
     Active Substance: RANOLAZINE
  12. PAROXETINE. [Concomitant]
     Active Substance: PAROXETINE

REACTIONS (1)
  - Death [None]

NARRATIVE: CASE EVENT DATE: 20210621
